FAERS Safety Report 18735436 (Version 1)
Quarter: 2021Q1

REPORT INFORMATION
  Report Type: Spontaneous
  Country: US (occurrence: US)
  Receive Date: 20210113
  Receipt Date: 20210113
  Transmission Date: 20210419
  Serious: No
  Sender: FDA-Public Use
  Company Number: None

PATIENT
  Age: 78 Year
  Sex: Female
  Weight: 81.65 kg

DRUGS (5)
  1. LISINOPRIL/HCTZ [Concomitant]
     Active Substance: HYDROCHLOROTHIAZIDE\LISINOPRIL
  2. MULTIVITAMIN [Concomitant]
     Active Substance: VITAMINS
  3. AZELASTINEHCL NASAL SOLUTION 0.1% [Suspect]
     Active Substance: AZELASTINE HYDROCHLORIDE
     Indication: PRODUCTIVE COUGH
     Dosage: ?          OTHER STRENGTH:0.1%;QUANTITY:2 DF DOSAGE FORM;?
     Route: 045
     Dates: start: 20201021, end: 20201021
  4. AZELASTINEHCL NASAL SOLUTION 0.1% [Suspect]
     Active Substance: AZELASTINE HYDROCHLORIDE
     Indication: RHINORRHOEA
     Dosage: ?          OTHER STRENGTH:0.1%;QUANTITY:2 DF DOSAGE FORM;?
     Route: 045
     Dates: start: 20201021, end: 20201021
  5. FISH OIL [Concomitant]
     Active Substance: FISH OIL

REACTIONS (4)
  - Dysgeusia [None]
  - Dizziness [None]
  - Somnolence [None]
  - Heart rate increased [None]

NARRATIVE: CASE EVENT DATE: 20201021
